FAERS Safety Report 7472824-8 (Version None)
Quarter: 2011Q2

REPORT INFORMATION
  Report Type: 
  Country: None (occurrence: None)
  Receive Date: 20110511
  Receipt Date: 20110503
  Transmission Date: 20111010
  Serious: Yes (Other)
  Sender: FDA-Public Use
  Company Number: US-JNJFOC-20110405983

PATIENT
  Sex: Male

DRUGS (4)
  1. CLONAZEPAM [Concomitant]
     Indication: ANXIETY
  2. WELLBUTRIN XL [Concomitant]
     Indication: DEPRESSION
  3. INVEGA SUSTENNA [Suspect]
     Indication: SCHIZOPHRENIA
     Route: 030
  4. COGENTIN [Concomitant]
     Indication: EXTRAPYRAMIDAL DISORDER

REACTIONS (2)
  - PRODUCT QUALITY ISSUE [None]
  - PRIAPISM [None]
